FAERS Safety Report 4759328-8 (Version None)
Quarter: 2005Q3

REPORT INFORMATION
  Report Type: 
  Country: None (occurrence: None)
  Receive Date: 20050826
  Receipt Date: 20050630
  Transmission Date: 20060218
  Serious: Yes (Hospitalization)
  Sender: FDA-Public Use
  Company Number: 214849

PATIENT
  Age: 27 Year
  Sex: Female

DRUGS (4)
  1. RAPTIVA [Suspect]
     Indication: PSORIASIS
     Dosage: 50 MG, 1/WEEK, SUBCUTANEOUS
     Route: 058
     Dates: start: 20050412
  2. BIRTH CONTROL PILLS NOS (ORAL CONTRACEPTIVE NOS) [Concomitant]
  3. SKIN ZINC CREAM (SALICYLIC ACID) [Concomitant]
  4. SKIN ZINC SPRAY (PYRITHIONE ZINC) [Concomitant]

REACTIONS (3)
  - ABDOMINAL INFECTION [None]
  - PAIN [None]
  - WHITE BLOOD CELL COUNT INCREASED [None]
